FAERS Safety Report 14361011 (Version 1)
Quarter: 2018Q1

REPORT INFORMATION
  Report Type: Spontaneous
  Country: US (occurrence: US)
  Receive Date: 20180105
  Receipt Date: 20180105
  Transmission Date: 20180509
  Serious: Yes (Hospitalization)
  Sender: FDA-Public Use
  Company Number: None

PATIENT
  Age: 74 Year
  Sex: Female

DRUGS (2)
  1. IBRANCE [Suspect]
     Active Substance: PALBOCICLIB
     Indication: BREAST CANCER
     Route: 048
     Dates: start: 20170829
  2. EXEMESTANE. [Suspect]
     Active Substance: EXEMESTANE

REACTIONS (2)
  - Anaemia [None]
  - Asthenia [None]

NARRATIVE: CASE EVENT DATE: 20171227
